FAERS Safety Report 15557300 (Version 2)
Quarter: 2019Q1

REPORT INFORMATION
  Report Type: Report from Study
  Country: None (occurrence: FR)
  Receive Date: 20181026
  Receipt Date: 20190116
  Transmission Date: 20190417
  Serious: Yes (Hospitalization)
  Sender: FDA-Public Use
  Company Number: FR-ABBVIE-18P-056-2535234-00

PATIENT
  Age: 57 Year
  Sex: Female

DRUGS (3)
  1. ATEZOLIZUMAB. [Concomitant]
     Active Substance: ATEZOLIZUMAB
     Indication: B-CELL LYMPHOMA
     Dosage: ON DAY 2 OF EACH 21-DAY CYCLE; LAST DOSE 07 SEP 2018
     Route: 065
     Dates: start: 20180515
  2. OBINUTUZUMAB. [Concomitant]
     Active Substance: OBINUTUZUMAB
     Indication: B-CELL LYMPHOMA
     Dosage: ON DAY 1, DAY 8 AND DAY 15 OF CYCLE 1 AND EACH DAY 1 FROM CYCLE 2 TO CYCLE 8
     Route: 065
     Dates: start: 20180514
  3. VENETOCLAX. [Suspect]
     Active Substance: VENETOCLAX
     Indication: B-CELL LYMPHOMA
     Dosage: FROM DAY 8 OF CYCLE 1, EVERY DAY DURING. LAST DOSE RECEIVED PRIOR TO SAE WAS 02 OCT 2018
     Route: 048
     Dates: start: 20180512

REACTIONS (2)
  - Myocarditis [Recovered/Resolved]
  - Pneumonia pneumococcal [Recovered/Resolved with Sequelae]

NARRATIVE: CASE EVENT DATE: 20181002
